FAERS Safety Report 10451119 (Version 2)
Quarter: 2014Q3

REPORT INFORMATION
  Report Type: Spontaneous
  Country: BE (occurrence: BE)
  Receive Date: 20140912
  Receipt Date: 20140912
  Transmission Date: 20150326
  Serious: Yes (Other)
  Sender: FDA-Public Use
  Company Number: BE-ELI_LILLY_AND_COMPANY-BE201406006758

PATIENT
  Age: 84 Year
  Sex: Female
  Weight: 55 kg

DRUGS (11)
  1. FORSTEO [Suspect]
     Active Substance: TERIPARATIDE
     Indication: OSTEOPOROSIS
     Dosage: UNK, UNKNOWN
     Route: 058
     Dates: start: 201402
  2. FORSTEO [Suspect]
     Active Substance: TERIPARATIDE
     Dosage: UNK, 1 EVERY 2 DAYS
     Route: 065
  3. EMCONCOR [Concomitant]
     Active Substance: BISOPROLOL FUMARATE
     Dosage: 5 MG, QD
     Route: 048
  4. PANTOMED                           /01263204/ [Concomitant]
     Dosage: 20 MG, QD
     Route: 048
  5. FORSTEO [Suspect]
     Active Substance: TERIPARATIDE
     Dosage: UNK, 1 EVERY 3 DAYS
     Route: 065
     Dates: end: 20140807
  6. CORDARONE [Concomitant]
     Active Substance: AMIODARONE HYDROCHLORIDE
     Dosage: 200 MG, QD
     Route: 048
  7. ALDACTAZINE [Concomitant]
     Active Substance: ALTHIAZIDE\SPIRONOLACTONE
     Dosage: UNK, QD
     Route: 048
  8. HALCION [Concomitant]
     Active Substance: TRIAZOLAM
     Dosage: 0.25 MG, QD
     Route: 048
  9. BURINEX [Concomitant]
     Active Substance: BUMETANIDE
     Dosage: 1 MG, 1/2 PER DAY
     Route: 048
  10. L THYROXIN [Concomitant]
     Active Substance: LEVOTHYROXINE SODIUM
     Dosage: 100 MG, QD
     Route: 048
  11. GLYCERYL TRINITRATE [Concomitant]
     Active Substance: NITROGLYCERIN
     Dosage: 10 MG, QD
     Route: 065

REACTIONS (5)
  - Nocturnal dyspnoea [Recovered/Resolved]
  - Hypercalcaemia [Recovered/Resolved]
  - Nausea [Recovered/Resolved]
  - Insomnia [Recovered/Resolved]
  - Vertigo [Recovered/Resolved]

NARRATIVE: CASE EVENT DATE: 201403
